FAERS Safety Report 17432707 (Version 2)
Quarter: 2020Q1

REPORT INFORMATION
  Report Type: Spontaneous
  Country: ES (occurrence: ES)
  Receive Date: 20200218
  Receipt Date: 20200226
  Transmission Date: 20200409
  Serious: Yes (Other)
  Sender: FDA-Public Use
  Company Number: ES-AMGEN-ESPSP2020025453

PATIENT
  Age: 76 Year
  Sex: Female

DRUGS (5)
  1. LORMETAZEPAM [Concomitant]
     Active Substance: LORMETAZEPAM
  2. PROLIA [Suspect]
     Active Substance: DENOSUMAB
     Indication: OSTEOPOROSIS
     Dosage: UNK
     Route: 065
     Dates: end: 201902
  3. ACETAMINOPHEN. [Concomitant]
     Active Substance: ACETAMINOPHEN
  4. PROLIA [Suspect]
     Active Substance: DENOSUMAB
     Dosage: UNK (RESTARTED)
     Route: 065
  5. OMEPRAZOLE. [Concomitant]
     Active Substance: OMEPRAZOLE

REACTIONS (1)
  - Spinal fracture [Unknown]
